FAERS Safety Report 5239390-9 (Version None)
Quarter: 2007Q1

REPORT INFORMATION
  Report Type: 
  Country: None (occurrence: None)
  Receive Date: 20070216
  Receipt Date: 20070207
  Transmission Date: 20070707
  Serious: Yes (Other)
  Sender: FDA-Public Use
  Company Number: 2007UW02627

PATIENT
  Age: 37 Year
  Sex: Female

DRUGS (3)
  1. SEROQUEL [Suspect]
     Route: 048
  2. ATARAX [Concomitant]
  3. NEURONTIN [Concomitant]

REACTIONS (1)
  - LIVER FUNCTION TEST ABNORMAL [None]
